FAERS Safety Report 7592859-4 (Version None)
Quarter: 2011Q3

REPORT INFORMATION
  Report Type: 
  Country: None (occurrence: None)
  Receive Date: 20110706
  Receipt Date: 20110705
  Transmission Date: 20111222
  Serious: No
  Sender: FDA-Public Use
  Company Number: US-PFIZER INC-2011150037

PATIENT
  Sex: Male
  Weight: 97.5 kg

DRUGS (2)
  1. LYRICA [Suspect]
     Indication: PAIN IN EXTREMITY
  2. LYRICA [Suspect]
     Indication: BACK PAIN
     Dosage: 50 MG, 3X/DAY
     Route: 048
     Dates: start: 20110702, end: 20110702

REACTIONS (1)
  - HYPERSOMNIA [None]
